FAERS Safety Report 24107256 (Version 1)
Quarter: 2024Q3

REPORT INFORMATION
  Report Type: Report from Study
  Country: CA (occurrence: CA)
  Receive Date: 20240718
  Receipt Date: 20240718
  Transmission Date: 20241017
  Serious: Yes (Other)
  Sender: ABBVIE
  Company Number: CA-ABBVIE-5842584

PATIENT
  Sex: Male
  Weight: 86 kg

DRUGS (1)
  1. SKYRIZI [Suspect]
     Active Substance: RISANKIZUMAB-RZAA
     Indication: Crohn^s disease
     Route: 058
     Dates: start: 20231106

REACTIONS (5)
  - Stoma creation [Unknown]
  - Arthralgia [Unknown]
  - Stoma complication [Unknown]
  - Quality of life decreased [Unknown]
  - Impaired work ability [Unknown]
